FAERS Safety Report 9175997 (Version 1)
Quarter: 2013Q1

REPORT INFORMATION
  Report Type: Spontaneous
  Country: US (occurrence: US)
  Receive Date: 20130320
  Receipt Date: 20130320
  Transmission Date: 20140127
  Serious: No
  Sender: FDA-Public Use
  Company Number: US-009507513-1303USA007062

PATIENT
  Sex: Male

DRUGS (2)
  1. ISENTRESS [Suspect]
     Indication: HIV INFECTION
     Dosage: UNK
     Route: 065
     Dates: end: 201302
  2. TRUVADA [Suspect]
     Dosage: UNK
     Route: 065
     Dates: start: 2010, end: 201302

REACTIONS (3)
  - Pain in extremity [Recovering/Resolving]
  - Abdominal pain [Recovering/Resolving]
  - Muscle spasms [Recovering/Resolving]
